FAERS Safety Report 16373845 (Version 6)
Quarter: 2019Q3

REPORT INFORMATION
  Report Type: Spontaneous
  Country: JP (occurrence: JP)
  Receive Date: 20190530
  Receipt Date: 20190816
  Transmission Date: 20191004
  Serious: Yes (Other)
  Sender: FDA-Public Use
  Company Number: PHJP2019JP005837

PATIENT
  Age: 40 Year
  Sex: Female
  Weight: 64.8 kg

DRUGS (6)
  1. FAMOTIDINE. [Suspect]
     Active Substance: FAMOTIDINE
     Indication: ANAESTHETIC PREMEDICATION
     Dosage: UNK
     Route: 042
  2. APRESOLIN [Suspect]
     Active Substance: HYDRALAZINE HYDROCHLORIDE
     Indication: HYPERTENSION
     Dosage: 60 MG, QD
     Route: 048
  3. CICLOSPORIN [Suspect]
     Active Substance: CYCLOSPORINE
     Indication: IGA NEPHROPATHY
     Dosage: UNK
     Route: 048
  4. NOVASTAN [Suspect]
     Active Substance: ARGATROBAN
     Indication: VENOUS THROMBOSIS LIMB
     Dosage: 0.8, QD (10MG/2ML)
     Route: 042
  5. RITODRINE [Suspect]
     Active Substance: RITODRINE
     Indication: UTERINE CONTRACTIONS ABNORMAL
     Dosage: UNK
     Route: 042
  6. PREDNISOLONE. [Suspect]
     Active Substance: PREDNISOLONE
     Indication: IGA NEPHROPATHY
     Dosage: UNK
     Route: 048

REACTIONS (7)
  - Anaphylactic shock [Recovered/Resolved]
  - Polyhydramnios [Unknown]
  - Premature delivery [Unknown]
  - Coagulopathy [Unknown]
  - Maternal exposure during pregnancy [Unknown]
  - Venous thrombosis limb [Unknown]
  - Live birth [Unknown]
